FAERS Safety Report 13680058 (Version 2)
Quarter: 2017Q3

REPORT INFORMATION
  Report Type: Spontaneous
  Country: US (occurrence: US)
  Receive Date: 20170622
  Receipt Date: 20170816
  Transmission Date: 20171127
  Serious: No
  Sender: FDA-Public Use
  Company Number: US-PFIZER INC-2017270403

PATIENT
  Age: 72 Year
  Sex: Female
  Weight: 104 kg

DRUGS (2)
  1. ADVIL [Suspect]
     Active Substance: IBUPROFEN
     Indication: BACK PAIN
     Dosage: UNK
  2. ADVIL [Suspect]
     Active Substance: IBUPROFEN
     Dosage: UNK

REACTIONS (3)
  - Product odour abnormal [Unknown]
  - Sinusitis [Unknown]
  - Poor quality drug administered [Unknown]

NARRATIVE: CASE EVENT DATE: 20170618
